FAERS Safety Report 25228699 (Version 2)
Quarter: 2025Q2

REPORT INFORMATION
  Report Type: Report from Study
  Country: US (occurrence: US)
  Receive Date: 20250423
  Receipt Date: 20250429
  Transmission Date: 20250717
  Serious: Yes (Other)
  Sender: ABBVIE
  Company Number: US-ABBVIE-6171239

PATIENT
  Sex: Female

DRUGS (2)
  1. SKYRIZI [Suspect]
     Active Substance: RISANKIZUMAB-RZAA
     Indication: Crohn^s disease
     Dosage: LAST ADMIN DATE 2024
     Route: 058
     Dates: start: 20240731
  2. SKYRIZI [Suspect]
     Active Substance: RISANKIZUMAB-RZAA
     Route: 058
     Dates: start: 20240830

REACTIONS (16)
  - Thyroid cancer [Unknown]
  - Pain [Recovering/Resolving]
  - Abdominal pain [Recovering/Resolving]
  - Frequent bowel movements [Not Recovered/Not Resolved]
  - Hypophagia [Recovering/Resolving]
  - Fluid intake reduced [Recovering/Resolving]
  - Goitre [Recovered/Resolved]
  - Feeling abnormal [Recovering/Resolving]
  - Peripheral swelling [Recovering/Resolving]
  - Grip strength decreased [Unknown]
  - Fatigue [Unknown]
  - Abdominal discomfort [Unknown]
  - Back disorder [Unknown]
  - Post procedural complication [Unknown]
  - Goitre [Recovering/Resolving]
  - Therapeutic product effect decreased [Recovering/Resolving]
